FAERS Safety Report 8619287-4 (Version None)
Quarter: 2012Q3

REPORT INFORMATION
  Report Type: 
  Country: None (occurrence: None)
  Receive Date: 20120810
  Receipt Date: 20120730
  Transmission Date: 20120928
  Serious: Yes (Other)
  Sender: FDA-Public Use
  Company Number: US-2012-10230

PATIENT
  Age: 73 Year
  Sex: Male

DRUGS (13)
  1. BUSULFAN [Suspect]
     Indication: MULTIPLE MYELOMA
     Dosage: 58 MG MILLIGRAM(S), DAILY DOSE, INTRAVENOUS ; 190 MG MILLIGRAM(S), DAILY DOSE, INTRAVENOUS
     Route: 042
     Dates: start: 20110421, end: 20110421
  2. BUSULFAN [Suspect]
     Indication: MULTIPLE MYELOMA
     Dosage: 58 MG MILLIGRAM(S), DAILY DOSE, INTRAVENOUS ; 190 MG MILLIGRAM(S), DAILY DOSE, INTRAVENOUS
     Route: 042
     Dates: start: 20110418, end: 20110418
  3. VITAMIN B12 [Suspect]
     Indication: ANAEMIA MACROCYTIC
     Dosage: 1000 MCG, QD, ORAL
     Route: 048
     Dates: start: 20110513
  4. ACYCLOVIR [Concomitant]
  5. ALBUTEROL SULFATE AUTOHALER [Concomitant]
  6. FENOFIBRATE [Concomitant]
  7. LISINOPRIL [Concomitant]
  8. BORTEZOMIB [Suspect]
     Indication: STEM CELL TRANSPLANT
     Dosage: 2.5 MG MILLIGRAM(S), DAILY DOSE, INTRAVENOUS
     Route: 042
     Dates: start: 20110425, end: 20110425
  9. URSODIOL [Concomitant]
  10. DALTEPARIN SODIUM [Concomitant]
  11. IPRATROPIUM BROMIDE [Concomitant]
  12. OMEPRAZOLE [Concomitant]
  13. SIMVASTATIN [Concomitant]

REACTIONS (2)
  - HYPERKALAEMIA [None]
  - DEEP VEIN THROMBOSIS [None]
